FAERS Safety Report 10069894 (Version 2)
Quarter: 2014Q3

REPORT INFORMATION
  Report Type: Spontaneous
  Country: AU (occurrence: None)
  Receive Date: 20140408
  Receipt Date: 20140722
  Transmission Date: 20150326
  Serious: Yes (Life-Threatening)
  Sender: FDA-Public Use
  Company Number: AUR-APL-2014-04194

PATIENT
  Age: 0 Day
  Sex: Female

DRUGS (4)
  1. ELEVIT RDI (MINERALS NOS W/VITAMINS NOS) [Concomitant]
  2. FLUOXETINE [Suspect]
     Active Substance: FLUOXETINE\FLUOXETINE HYDROCHLORIDE
     Indication: PRODUCT USED FOR UNKNOWN INDICATION
     Route: 064
  3. AURO-QUETIAPINE 200 [Suspect]
     Active Substance: QUETIAPINE
     Indication: PRODUCT USED FOR UNKNOWN INDICATION
     Route: 064
  4. GINGER (ZINGIBER OFFICINALE RHIZOME) [Concomitant]

REACTIONS (11)
  - Drug withdrawal syndrome neonatal [None]
  - Neonatal respiratory distress syndrome [None]
  - Feeding disorder neonatal [None]
  - Maternal drugs affecting foetus [None]
  - Crying [None]
  - Dysphagia [None]
  - Sneezing [None]
  - Yawning [None]
  - Nasal congestion [None]
  - Apgar score low [None]
  - Irritability [None]

NARRATIVE: CASE EVENT DATE: 20111031
